FAERS Safety Report 5247845-6 (Version None)
Quarter: 2007Q1

REPORT INFORMATION
  Report Type: 
  Country: None (occurrence: None)
  Receive Date: 20070227
  Receipt Date: 20070227
  Transmission Date: 20070707
  Serious: Yes (Life-Threatening, Hospitalization)
  Sender: FDA-Public Use
  Company Number: None

PATIENT
  Age: 11 Year
  Sex: Male
  Weight: 38.8 kg

DRUGS (1)
  1. ETOPOSIDE [Suspect]
     Indication: HODGKIN'S DISEASE
     Dosage: 160 MG -125 MG/M2- ONCE IV
     Route: 042
     Dates: start: 20060607, end: 20060607

REACTIONS (3)
  - RESPIRATORY DISTRESS [None]
  - VOMITING [None]
  - WHEEZING [None]
